FAERS Safety Report 9103405 (Version 1)
Quarter: 2013Q1

REPORT INFORMATION
  Report Type: Spontaneous
  Country: US (occurrence: US)
  Receive Date: 20130219
  Receipt Date: 20130219
  Transmission Date: 20140127
  Serious: No
  Sender: FDA-Public Use
  Company Number: US-PFIZER INC-2013059472

PATIENT
  Age: 61 Year
  Sex: Female
  Weight: 99.77 kg

DRUGS (4)
  1. GLIPIZIDE XL [Suspect]
     Indication: DIABETES MELLITUS
     Dosage: 5MG, 1X/DAY
     Route: 048
  2. METFORMIN [Concomitant]
     Dosage: UNK
  3. LISINOPRIL [Concomitant]
     Dosage: UNK
  4. BABY ASPIRIN [Concomitant]
     Dosage: UNK

REACTIONS (3)
  - Blood glucose abnormal [Unknown]
  - Glycosylated haemoglobin increased [Unknown]
  - Tablet physical issue [Unknown]
